FAERS Safety Report 9527796 (Version 2)
Quarter: 2013Q2

REPORT INFORMATION
  Report Type: Spontaneous
  Country: US (occurrence: None)
  Receive Date: 20130314
  Receipt Date: 20130606
  Transmission Date: 20140414
  Serious: Yes (Other)
  Sender: FDA-Public Use
  Company Number: 2012PROUSA02438

PATIENT
  Age: 82 Year
  Sex: Male
  Weight: 111.6 kg

DRUGS (19)
  1. PROVENGE (SIPULEUCEL-T) SUSPENSION, 250ML [Suspect]
     Indication: PROSTATE CANCER METASTATIC
     Dosage: 250 M, SINGLE, INTRAVENOUS
     Route: 042
     Dates: start: 20121116, end: 20121116
  2. PREDNISONE (PREDNISONE) [Concomitant]
  3. OXYCODONE HYDROCHLORIDE (OXYCODONE HYDROCHLORIDE) [Concomitant]
  4. IBUPROFEN (IBUPROOFEN) [Concomitant]
  5. BICALUTAMIDE (BICALUTAMIDE) [Concomitant]
  6. OXYBUTYNIN CHLORIDE (OXYBUTYNIN CHLORIDE) [Concomitant]
  7. FUROSEMIDE (FUROSEMIDE) [Concomitant]
  8. ASPIRIN (ACETYLSALICYLIC ACID) [Concomitant]
  9. TAMSULOSIN HYDROCHLORIDE (TAMSULOSIN HYDROCHLORIDE) [Concomitant]
  10. TIOTROPIUM BROMIDE MONOHYDRATE (TIOTROPIUM BROMIDE MONOHYDRATE) [Concomitant]
  11. METOPROLOL TARTRATE (METOPROLOL TARTRATE) [Concomitant]
  12. CALCIUM +D (CALCIUM CARBONATE, COLEALCIFEROL) [Concomitant]
  13. GLIPIZIDE (GLIPIZIDE) [Concomitant]
  14. SIMVASTATIN (SIMVASTATIN) [Concomitant]
  15. ADVAIR (FLUTICASONE PROPIONATE, SALMETEROL XINAFOATE) [Concomitant]
  16. KLOR-CON (POTASSIUM CHLORIDE) [Concomitant]
  17. PROVENTIL (SALBUTAMOL SULFATE) [Concomitant]
  18. FLONASE (FLUTICASONE PROPIONATE) [Concomitant]
  19. TYLENOL (PARACETAMOL) [Concomitant]

REACTIONS (5)
  - Disease progression [None]
  - Thrombosis [None]
  - Muscular weakness [None]
  - Cough [None]
  - Constipation [None]
